FAERS Safety Report 4791201-1 (Version None)
Quarter: 2005Q4

REPORT INFORMATION
  Report Type: 
  Country: None (occurrence: None)
  Receive Date: 20051005
  Receipt Date: 20050919
  Transmission Date: 20060501
  Serious: Yes (Other)
  Sender: FDA-Public Use
  Company Number: 12421

PATIENT
  Sex: Female

DRUGS (2)
  1. MORPHINE SULFATE [Suspect]
     Dosage: 10 MG BID PO
     Route: 048
  2. OLANZAPINE [Suspect]
     Indication: HYPOMANIA
     Dosage: 25 MG NOCTE

REACTIONS (6)
  - DRUG INTERACTION [None]
  - OVERDOSE [None]
  - PNEUMONIA ASPIRATION [None]
  - RESPIRATORY DEPRESSION [None]
  - SEDATION [None]
  - THERAPEUTIC AGENT TOXICITY [None]
